FAERS Safety Report 9286815 (Version 1)
Quarter: 2013Q2

REPORT INFORMATION
  Report Type: Spontaneous
  Country: ZA (occurrence: None)
  Receive Date: 20130508
  Receipt Date: 20130508
  Transmission Date: 20140414
  Serious: Yes (Hospitalization)
  Sender: FDA-Public Use
  Company Number: 2013P1005507

PATIENT
  Age: 64 Year
  Sex: Male
  Weight: 69.54 kg

DRUGS (6)
  1. DIGOXIN [Suspect]
     Dates: start: 20121018
  2. BLINDED TRIAL MEDICATION [Suspect]
     Indication: NON-SMALL CELL LUNG CANCER
     Route: 048
     Dates: start: 20121030
  3. ASPIRIN [Suspect]
     Dates: start: 20121018
  4. AMLOC [Suspect]
     Dates: start: 200812
  5. CO-DIOVAN [Suspect]
  6. VENLAFAXINE HYDROCHLORIDE [Suspect]

REACTIONS (2)
  - Fatigue [None]
  - Hypotension [None]
